FAERS Safety Report 24584137 (Version 2)
Quarter: 2024Q4

REPORT INFORMATION
  Report Type: Spontaneous
  Country: BE (occurrence: BE)
  Receive Date: 20241106
  Receipt Date: 20241115
  Transmission Date: 20250115
  Serious: Yes (Other)
  Sender: SAMSUNG BIOEPIS
  Company Number: BE-SAMSUNG BIOEPIS-SB-2024-32828

PATIENT
  Age: 57 Year
  Sex: Female

DRUGS (1)
  1. ADALIMUMAB [Suspect]
     Active Substance: ADALIMUMAB
     Indication: Hidradenitis
     Dates: start: 201701, end: 202008

REACTIONS (1)
  - Dermatomyositis [Recovering/Resolving]
